FAERS Safety Report 7796656-6 (Version None)
Quarter: 2011Q3

REPORT INFORMATION
  Report Type: 
  Country: None (occurrence: None)
  Receive Date: 20110930
  Receipt Date: 20110915
  Transmission Date: 20111222
  Serious: Yes (Hospitalization)
  Sender: FDA-Public Use
  Company Number: JPI-P-017179

PATIENT
  Age: 64 Year
  Sex: Female
  Weight: 59.8748 kg

DRUGS (13)
  1. CONJUGATED ESTROGENS [Concomitant]
  2. CALCIUM AND VITAMIN D [Concomitant]
  3. TOPIRAMATE [Concomitant]
  4. FLAXSEED OIL [Concomitant]
  5. GLUCOSAMINE [Concomitant]
  6. XYREM [Suspect]
     Indication: CONFUSIONAL AROUSAL
     Dosage: ORAL; 4 GM (2 GM, 2 IN 1 D), 0RAL
     Route: 048
     Dates: start: 20100101
  7. XYREM [Suspect]
     Indication: RESTLESS LEGS SYNDROME
     Dosage: ORAL; 4 GM (2 GM, 2 IN 1 D), 0RAL
     Route: 048
     Dates: start: 20100101
  8. RANOLAZINE [Suspect]
     Indication: CHEST PAIN
     Dates: start: 20110301
  9. FENATANYL [Concomitant]
  10. ATORVASTATIN CALCIUM [Concomitant]
  11. EZETIMIBE [Concomitant]
  12. HYDROXYCHLOROQUINE SULFATE [Concomitant]
  13. MULTI-VITAMINS [Concomitant]

REACTIONS (2)
  - CONSTIPATION [None]
  - CHEST PAIN [None]
